FAERS Safety Report 7430294-X (Version None)
Quarter: 2011Q2

REPORT INFORMATION
  Report Type: 
  Country: None (occurrence: None)
  Receive Date: 20110419
  Receipt Date: 20110419
  Transmission Date: 20111010
  Serious: No
  Sender: FDA-Public Use
  Company Number: None

PATIENT
  Age: 26 Year
  Sex: Female
  Weight: 54.4316 kg

DRUGS (1)
  1. NUVARING [Suspect]
     Indication: CONTRACEPTION
     Dosage: 1 RING CONSISTANT VAG
     Route: 067
     Dates: start: 20110411, end: 20110417

REACTIONS (4)
  - DYSURIA [None]
  - SWELLING [None]
  - RASH [None]
  - ERYTHEMA [None]
